FAERS Safety Report 8574307-0 (Version None)
Quarter: 2012Q3

REPORT INFORMATION
  Report Type: 
  Country: None (occurrence: None)
  Receive Date: 20120806
  Receipt Date: 20120725
  Transmission Date: 20120928
  Serious: Yes (Hospitalization)
  Sender: FDA-Public Use
  Company Number: US-BIOGENIDEC-2010BI039348

PATIENT
  Age: 42 Year
  Sex: Female

DRUGS (3)
  1. TYSABRI [Suspect]
     Indication: MULTIPLE SCLEROSIS
     Route: 042
     Dates: start: 20100517
  2. IV NARCOTIC (NOS) [Concomitant]
     Indication: PREMEDICATION
  3. AMPHETAMINES [Concomitant]
     Indication: FATIGUE

REACTIONS (6)
  - INCISION SITE ERYTHEMA [None]
  - FATIGUE [None]
  - INCISION SITE OEDEMA [None]
  - PAIN [None]
  - MENINGIOMA SURGERY [None]
  - MENINGIOMA [None]
